FAERS Safety Report 11389053 (Version 1)
Quarter: 2015Q3

REPORT INFORMATION
  Report Type: Spontaneous
  Country: US (occurrence: US)
  Receive Date: 20150817
  Receipt Date: 20150817
  Transmission Date: 20151125
  Serious: Yes (Hospitalization)
  Sender: FDA-Public Use
  Company Number: US-B.I. PHARMACEUTICALS,INC./RIDGEFIELD-2015-BI-43751BP

PATIENT
  Sex: Female

DRUGS (1)
  1. DULCOLAX [Suspect]
     Active Substance: BISACODYL OR DOCUSATE SODIUM
     Indication: BOWEL PREPARATION
     Route: 065

REACTIONS (9)
  - Heart injury [Unknown]
  - Laceration [Unknown]
  - Abdominal pain upper [Unknown]
  - Syncope [Unknown]
  - Hyperhidrosis [Unknown]
  - Visual acuity reduced [Unknown]
  - Posture abnormal [Unknown]
  - Vomiting [Unknown]
  - Blood pressure decreased [Unknown]
